FAERS Safety Report 6703961-0 (Version None)
Quarter: 2010Q2

REPORT INFORMATION
  Report Type: 
  Country: None (occurrence: None)
  Receive Date: 20100430
  Receipt Date: 20100422
  Transmission Date: 20101027
  Serious: Yes (Other)
  Sender: FDA-Public Use
  Company Number: US-PFIZER INC-2010051866

PATIENT
  Sex: Male
  Weight: 122 kg

DRUGS (1)
  1. LIPITOR [Suspect]
     Dosage: UNK
     Route: 048
     Dates: start: 20100301

REACTIONS (2)
  - ENTERITIS [None]
  - URINARY TRACT INFECTION [None]
